FAERS Safety Report 20562570 (Version 1)
Quarter: 2022Q1

REPORT INFORMATION
  Report Type: Spontaneous
  Country: US (occurrence: None)
  Receive Date: 20220307
  Receipt Date: 20220307
  Transmission Date: 20220423
  Serious: Yes (Hospitalization)
  Sender: FDA-Public Use
  Company Number: None

PATIENT
  Age: 66 Year
  Sex: Female

DRUGS (18)
  1. SOTROVIMAB [Suspect]
     Active Substance: SOTROVIMAB
     Indication: COVID-19
     Dosage: OTHER FREQUENCY : ONCE;?
     Route: 042
     Dates: start: 20220223, end: 20220223
  2. albuterol HFA (VENTOLIN HFA) 90 mcg/actuation inhaler [Concomitant]
  3. alendronate (FOSAMAX) 70 mg tablet [Concomitant]
  4. amoxicillin-pot clavulanate (Augmentin) 875-125 mg per tablet [Concomitant]
  5. aspirin 81 mg tablet [Concomitant]
  6. azithromycin (ZITHROMAX) 500 mg tablet [Concomitant]
  7. cyclobenzaprine (FLEXERIL) 5 mg tablet [Concomitant]
  8. fluticasone-umeclidin-vilanter 100-62.5-25 mcg blister with inhaler [Concomitant]
  9. folic acid (FOLVITE) 1 mg tablet [Concomitant]
  10. HYDROcodone-acetaminophen (NORCO) 10-325 mg per tablet (C-II) PRN [Concomitant]
  11. ibuprofen (ADVIL,MOTRIN) 600 mg tablet PRN [Concomitant]
  12. ipratropium-albuteroL (DUONEB) 0.5-2.5 mg/3 mL nebulizer solution [Concomitant]
  13. levoFLOXacin (Levaquin) 500 mg tablet [Concomitant]
  14. mercaptopurine (PURINETHOL) 50 mg chemo tablet [Concomitant]
  15. omeprazole (PriLOSEC) 20 mg capsule [Concomitant]
  16. potassium chloride (KLOR-CON M20) 20 mEq CR tablet [Concomitant]
  17. predniSONE (DELTASONE) 40 mg daily for 4 days [Concomitant]
  18. roflumilast (DALIRESP) 500 mcg tablet [Concomitant]

REACTIONS (15)
  - Fatigue [None]
  - Dyspnoea exertional [None]
  - Hypokalaemia [None]
  - Brain natriuretic peptide increased [None]
  - Leukocytosis [None]
  - Band neutrophil count increased [None]
  - Sepsis [None]
  - Pneumonia [None]
  - Pulmonary necrosis [None]
  - Pneumonia pseudomonal [None]
  - Treatment failure [None]
  - Respiratory failure [None]
  - Chronic obstructive pulmonary disease [None]
  - Emphysema [None]
  - Hypomagnesaemia [None]

NARRATIVE: CASE EVENT DATE: 20220301
